FAERS Safety Report 9548483 (Version 1)
Quarter: 2013Q3

REPORT INFORMATION
  Report Type: Spontaneous
  Country: US (occurrence: None)
  Receive Date: 20130923
  Receipt Date: 20130923
  Transmission Date: 20140515
  Serious: Yes (Other)
  Sender: FDA-Public Use
  Company Number: None

PATIENT
  Age: 79 Year
  Sex: Male
  Weight: 73.03 kg

DRUGS (1)
  1. ALPRAZOLAM [Suspect]
     Indication: INSOMNIA
     Dosage: AT BEDTIME TAKEN BY MOUTH

REACTIONS (8)
  - Dizziness [None]
  - Weight decreased [None]
  - Amnesia [None]
  - Feeling jittery [None]
  - Thinking abnormal [None]
  - Poor quality sleep [None]
  - Insomnia [None]
  - Drug ineffective [None]
